FAERS Safety Report 7049385-0 (Version None)
Quarter: 2010Q4

REPORT INFORMATION
  Report Type: 
  Country: None (occurrence: None)
  Receive Date: 20101018
  Receipt Date: 20101007
  Transmission Date: 20110411
  Serious: Yes (Hospitalization)
  Sender: FDA-Public Use
  Company Number: ES-ROCHE-731966

PATIENT
  Age: 61 Year
  Sex: Female

DRUGS (3)
  1. AVASTIN [Suspect]
     Route: 042
     Dates: start: 20100228, end: 20100228
  2. FLUOROURACIL [Interacting]
     Route: 042
     Dates: start: 20100228, end: 20100228
  3. OXALIPLATINO [Interacting]
     Route: 042
     Dates: start: 20100228, end: 20100228

REACTIONS (5)
  - COUGH [None]
  - GASTROINTESTINAL TOXICITY [None]
  - NEUROTOXICITY [None]
  - NEUTROPENIA [None]
  - SKIN TOXICITY [None]
